FAERS Safety Report 6141163-X (Version None)
Quarter: 2009Q1

REPORT INFORMATION
  Report Type: 
  Country: None (occurrence: None)
  Receive Date: 20090331
  Receipt Date: 20090316
  Transmission Date: 20090719
  Serious: Yes (Death, Hospitalization)
  Sender: FDA-Public Use
  Company Number: DSM-2009-00213

PATIENT
  Sex: Male

DRUGS (4)
  1. OLMESARTAN MEDOXOMIL [Suspect]
     Indication: HYPERTENSION
     Dosage: 20 MG (1 D), ORAL; 7 DAYS AFTER IXIA WAS STARTED
     Route: 048
  2. SINTROM (ACENOCOUMAROL) (ACENOCOUMAROL) [Concomitant]
  3. DIGOXIN [Concomitant]
  4. EPOSARTAN (EPROSARTAN) (EPROSARTAN) [Concomitant]

REACTIONS (6)
  - ATAXIA [None]
  - HYPOTENSION [None]
  - MONOPARESIS [None]
  - PNEUMONIA [None]
  - PYRAMIDAL TRACT SYNDROME [None]
  - SOMNOLENCE [None]
